FAERS Safety Report 21269250 (Version 3)
Quarter: 2022Q3

REPORT INFORMATION
  Report Type: Report from Study
  Country: IE (occurrence: IE)
  Receive Date: 20220830
  Receipt Date: 20220907
  Transmission Date: 20221026
  Serious: No
  Sender: FDA-Public Use
  Company Number: IE-JNJFOC-20220826365

PATIENT
  Age: 24 Year
  Sex: Female

DRUGS (6)
  1. STELARA [Suspect]
     Active Substance: USTEKINUMAB
     Indication: Crohn^s disease
     Dosage: STRENGTH: 90.00 MG/ML
     Route: 058
     Dates: start: 20220811
  2. STELARA [Suspect]
     Active Substance: USTEKINUMAB
     Indication: Psoriasis
  3. PENTASA [Concomitant]
     Active Substance: MESALAMINE
  4. CHOLECALCIFEROL [Concomitant]
     Active Substance: CHOLECALCIFEROL
  5. SERTRALINE [Concomitant]
     Active Substance: SERTRALINE HYDROCHLORIDE
  6. DESOGESTREL [Concomitant]
     Active Substance: DESOGESTREL

REACTIONS (3)
  - Device deployment issue [Unknown]
  - Psoriasis [Unknown]
  - Injection site dryness [Unknown]

NARRATIVE: CASE EVENT DATE: 20220811
